FAERS Safety Report 5102458-1 (Version None)
Quarter: 2006Q3

REPORT INFORMATION
  Report Type: 
  Country: None (occurrence: None)
  Receive Date: 20060912
  Receipt Date: 20060901
  Transmission Date: 20061208
  Serious: Yes (Hospitalization)
  Sender: FDA-Public Use
  Company Number: US-JNJFOC-20060900753

PATIENT
  Sex: Male
  Weight: 81.65 kg

DRUGS (5)
  1. FENTANYL TRANSDERMAL SYSTEM [Suspect]
     Indication: BACK PAIN
     Route: 062
  2. XANAX [Concomitant]
     Indication: NERVOUSNESS
     Route: 048
  3. RESTORIL [Concomitant]
     Indication: SLEEP DISORDER
     Route: 048
  4. ZOLOFT [Concomitant]
     Indication: DEPRESSION
     Route: 048
  5. PROTONIX [Concomitant]
     Indication: GASTROINTESTINAL DISORDER
     Route: 048

REACTIONS (6)
  - CHEST PAIN [None]
  - CHOLELITHIASIS [None]
  - DYSPNOEA [None]
  - INAPPROPRIATE SCHEDULE OF DRUG ADMINISTRATION [None]
  - NAUSEA [None]
  - THERAPEUTIC RESPONSE DECREASED [None]
